FAERS Safety Report 6634856-9 (Version None)
Quarter: 2010Q1

REPORT INFORMATION
  Report Type: 
  Country: None (occurrence: None)
  Receive Date: 20100315
  Receipt Date: 20100302
  Transmission Date: 20100710
  Serious: Yes (Other)
  Sender: FDA-Public Use
  Company Number: US-PFIZER INC-2010017864

PATIENT
  Sex: Female

DRUGS (3)
  1. GEODON [Suspect]
     Indication: BIPOLAR I DISORDER
     Dosage: 80 MG, 2X/DAY
     Route: 048
     Dates: start: 20050123, end: 20091019
  2. CLONAZEPAM [Concomitant]
  3. LAMICTAL CD [Concomitant]

REACTIONS (2)
  - ELECTROCARDIOGRAM P WAVE ABNORMAL [None]
  - SYNCOPE [None]
